FAERS Safety Report 23902980 (Version 1)
Quarter: 2024Q2

REPORT INFORMATION
  Report Type: Spontaneous
  Country: US (occurrence: US)
  Receive Date: 20240527
  Receipt Date: 20240527
  Transmission Date: 20240716
  Serious: No
  Sender: FDA-Public Use
  Company Number: US-BIOGEN-2022BI01158205

PATIENT
  Sex: Male

DRUGS (3)
  1. VUMERITY [Suspect]
     Active Substance: DIROXIMEL FUMARATE
     Indication: Multiple sclerosis
     Dosage: TAKE 2 CAPSULES (462MG) BY MOUTH TWICE DAILY
     Route: 050
     Dates: start: 20220512
  2. D-3-5 [Concomitant]
     Indication: Product used for unknown indication
     Route: 050
  3. TYLENOL [Concomitant]
     Active Substance: ACETAMINOPHEN
     Indication: Product used for unknown indication
     Route: 050

REACTIONS (10)
  - Product dose omission issue [Unknown]
  - Product dose omission in error [Unknown]
  - Pain in extremity [Unknown]
  - Headache [Unknown]
  - Abdominal discomfort [Unknown]
  - Limb injury [Unknown]
  - Blepharospasm [Unknown]
  - Rash erythematous [Recovered/Resolved]
  - Miliaria [Not Recovered/Not Resolved]
  - Flushing [Unknown]
